FAERS Safety Report 7771741-3 (Version None)
Quarter: 2011Q3

REPORT INFORMATION
  Report Type: 
  Country: None (occurrence: None)
  Receive Date: 20110922
  Receipt Date: 20110911
  Transmission Date: 20111222
  Serious: Yes (Other)
  Sender: FDA-Public Use
  Company Number: US-PFIZER INC-2011213093

PATIENT
  Sex: Female

DRUGS (2)
  1. CELEXA [Interacting]
     Dosage: 20 MG, UNK
     Dates: start: 20110901
  2. PRISTIQ [Suspect]
     Dosage: UNK
     Dates: start: 20110910

REACTIONS (4)
  - DRUG INTERACTION [None]
  - PANIC ATTACK [None]
  - ANXIETY [None]
  - HEART RATE INCREASED [None]
